FAERS Safety Report 7312498-X (Version None)
Quarter: 2011Q1

REPORT INFORMATION
  Report Type: 
  Country: None (occurrence: None)
  Receive Date: 20110119
  Receipt Date: 20100709
  Transmission Date: 20110831
  Serious: Yes (Hospitalization, Other)
  Sender: FDA-Public Use
  Company Number: A-US2008-19781

PATIENT
  Age: 65 Year
  Sex: Male

DRUGS (2)
  1. VENTAVIS [Suspect]
     Indication: PULMONARY ARTERIAL HYPERTENSION
     Dosage: RESPIRATORY
     Route: 055
     Dates: start: 20080220
  2. TRACLEER [Suspect]
     Indication: PULMONARY ARTERIAL HYPERTENSION
     Dosage: ORAL
     Route: 048
     Dates: start: 20070919

REACTIONS (7)
  - CHEST PAIN [None]
  - RIGHT VENTRICULAR FAILURE [None]
  - DIZZINESS [None]
  - CARDIAC FAILURE CONGESTIVE [None]
  - HEADACHE [None]
  - FLUID OVERLOAD [None]
  - FLUID RETENTION [None]
